FAERS Safety Report 19499487 (Version 3)
Quarter: 2021Q3

REPORT INFORMATION
  Report Type: Spontaneous
  Country: US (occurrence: US)
  Receive Date: 20210707
  Receipt Date: 20210813
  Transmission Date: 20211014
  Serious: Yes (Other)
  Sender: FDA-Public Use
  Company Number: US-BEH-2021133475

PATIENT
  Age: 12 Year
  Sex: Male

DRUGS (1)
  1. HUMAN IMMUNOGLOBULIN (INN) [Suspect]
     Active Substance: HUMAN IMMUNOGLOBULIN G
     Indication: HYPOGAMMAGLOBULINAEMIA
     Route: 042

REACTIONS (3)
  - Pulmonary arterial hypertension [Unknown]
  - Pulmonary embolism [Unknown]
  - Venous thrombosis [Unknown]
